FAERS Safety Report 8152097-3 (Version None)
Quarter: 2012Q1

REPORT INFORMATION
  Report Type: 
  Country: None (occurrence: None)
  Receive Date: 20120221
  Receipt Date: 20120217
  Transmission Date: 20120608
  Serious: Yes (Disabling, Other)
  Sender: FDA-Public Use
  Company Number: US-PFIZER INC-2012043658

PATIENT
  Sex: Male
  Weight: 123 kg

DRUGS (8)
  1. INSULIN [Concomitant]
     Indication: DIABETES MELLITUS
     Dosage: UNK, 2X/DAY
  2. LYRICA [Suspect]
     Dosage: 300 MG, UNK
     Route: 048
     Dates: start: 20090101, end: 20100101
  3. LYRICA [Suspect]
     Indication: NEUROPATHY PERIPHERAL
     Dosage: 75 MG, 2X/DAY
     Route: 048
     Dates: start: 20070201, end: 20090101
  4. METFORMIN [Concomitant]
     Indication: DIABETES MELLITUS
     Dosage: UNK
  5. LYRICA [Suspect]
     Dosage: 450 MG, UNK
     Route: 048
     Dates: start: 20100101
  6. CYMBALTA [Concomitant]
     Indication: PAIN
     Dosage: 60 MG, 2X/DAY
  7. LYRICA [Suspect]
     Dosage: UNK
     Route: 048
     Dates: end: 20111001
  8. GABAPENTIN [Suspect]
     Dosage: UNK

REACTIONS (5)
  - GLYCOSYLATED HAEMOGLOBIN INCREASED [None]
  - NEUROPATHY PERIPHERAL [None]
  - LOW DENSITY LIPOPROTEIN INCREASED [None]
  - SEDATION [None]
  - LOCALISED INFECTION [None]
